FAERS Safety Report 17483325 (Version 1)
Quarter: 2020Q1

REPORT INFORMATION
  Report Type: Spontaneous
  Country: US (occurrence: US)
  Receive Date: 20200229
  Receipt Date: 20200229
  Transmission Date: 20200409
  Serious: No
  Sender: FDA-Public Use
  Company Number: None

PATIENT
  Age: 42 Year
  Sex: Female
  Weight: 63 kg

DRUGS (3)
  1. MAGNESIUM CITRATE. [Concomitant]
     Active Substance: MAGNESIUM CITRATE
  2. LEVOTHYROXINE 0.05MCG (50MCG) TAB [Suspect]
     Active Substance: LEVOTHYROXINE SODIUM
     Indication: AUTOIMMUNE THYROIDITIS
     Dosage: ?          QUANTITY:90 TABLET(S);?
     Route: 048
     Dates: start: 20200201, end: 20200228
  3. SELENIUM [Concomitant]
     Active Substance: SELENIUM

REACTIONS (4)
  - Joint swelling [None]
  - Urticaria [None]
  - Pruritus [None]
  - Abdominal pain upper [None]

NARRATIVE: CASE EVENT DATE: 20200227
